FAERS Safety Report 5679209-5 (Version None)
Quarter: 2008Q1

REPORT INFORMATION
  Report Type: 
  Country: None (occurrence: None)
  Receive Date: 20080325
  Receipt Date: 20080312
  Transmission Date: 20080703
  Serious: Yes (Hospitalization)
  Sender: FDA-Public Use
  Company Number: BR-TYCO HEALTHCARE/MALLINCKRODT-T200800541

PATIENT

DRUGS (1)
  1. METHADONE POWDER [Suspect]
     Indication: PELVIC PAIN
     Dosage: 10 MG, HR
     Route: 042

REACTIONS (4)
  - ANTERIOR SPINAL ARTERY SYNDROME [None]
  - CARDIAC ARREST [None]
  - DRUG TOXICITY [None]
  - PARAPARESIS [None]
